FAERS Safety Report 12194603 (Version 1)
Quarter: 2016Q1

REPORT INFORMATION
  Report Type: Spontaneous
  Country: US (occurrence: None)
  Receive Date: 20160318
  Receipt Date: 20160318
  Transmission Date: 20160526
  Serious: No
  Sender: FDA-Public Use
  Company Number: None

PATIENT
  Age: 79 Year
  Sex: Female
  Weight: 72.12 kg

DRUGS (5)
  1. PACE MAKER (BECAUSE OF ANAPHYLAXIS REACTION TO LORTAB) [Concomitant]
  2. PROLIA [Suspect]
     Active Substance: DENOSUMAB
     Indication: OSTEOPOROSIS
     Dosage: EVERY 6 MONTHS, INJECTION
     Dates: start: 20150127
  3. ZETIA [Concomitant]
     Active Substance: EZETIMIBE
  4. BIOTIN [Concomitant]
     Active Substance: BIOTIN
  5. CALCIUM [Concomitant]
     Active Substance: CALCIUM

REACTIONS (7)
  - Groin pain [None]
  - Arthralgia [None]
  - Blood cholesterol increased [None]
  - Scleroderma [None]
  - Gait disturbance [None]
  - Asthenia [None]
  - Pain in extremity [None]

NARRATIVE: CASE EVENT DATE: 20160127
